FAERS Safety Report 16007798 (Version 2)
Quarter: 2019Q1

REPORT INFORMATION
  Report Type: Report from Study
  Country: US (occurrence: US)
  Receive Date: 20190224
  Receipt Date: 20190308
  Transmission Date: 20190418
  Serious: Yes (Hospitalization)
  Sender: FDA-Public Use
  Company Number: US-EISAI MEDICAL RESEARCH-EC-2018-048370

PATIENT
  Age: 64 Year
  Sex: Male
  Weight: 72.57 kg

DRUGS (6)
  1. LENVIMA [Suspect]
     Active Substance: LENVATINIB
     Indication: RENAL CANCER
     Route: 048
     Dates: start: 20181102, end: 20190109
  2. FENTANYL. [Suspect]
     Active Substance: FENTANYL
     Route: 062
  3. AFINITOR [Concomitant]
     Active Substance: EVEROLIMUS
  4. COUMADIN [Concomitant]
     Active Substance: WARFARIN SODIUM
  5. FENTANYL. [Suspect]
     Active Substance: FENTANYL
     Indication: PRODUCT USED FOR UNKNOWN INDICATION
     Dosage: ALTERNATING BETWEEN 25 MCG TO 12 MCG
     Route: 062
  6. PROTONIX [Concomitant]
     Active Substance: PANTOPRAZOLE SODIUM

REACTIONS (11)
  - Pain [Not Recovered/Not Resolved]
  - Weight decreased [Not Recovered/Not Resolved]
  - Tongue haemorrhage [Recovered/Resolved]
  - Toxicity to various agents [Not Recovered/Not Resolved]
  - Infection [Recovered/Resolved]
  - Fatigue [Not Recovered/Not Resolved]
  - Malaise [Unknown]
  - Blood pressure increased [Not Recovered/Not Resolved]
  - Tongue biting [Recovered/Resolved]
  - Diarrhoea [Not Recovered/Not Resolved]
  - Malignant neoplasm progression [Not Recovered/Not Resolved]

NARRATIVE: CASE EVENT DATE: 201811
